FAERS Safety Report 24466303 (Version 1)
Quarter: 2024Q4

REPORT INFORMATION
  Report Type: Report from Study
  Country: US (occurrence: US)
  Receive Date: 20241018
  Receipt Date: 20241018
  Transmission Date: 20250115
  Serious: No
  Sender: ROCHE
  Company Number: US-ROCHE-3532140

PATIENT

DRUGS (2)
  1. XOLAIR [Suspect]
     Active Substance: OMALIZUMAB
     Indication: Asthma
     Dosage: OTHER DOSAGE [E.G. 24/26 MG, 1.6X10^8 CAR-POSITIVE VIABLE T CELLS OR OTHER]
     Route: 065
  2. MONTELUKAST [Concomitant]
     Active Substance: MONTELUKAST

REACTIONS (6)
  - Blood immunoglobulin E increased [Unknown]
  - Mast cell activation syndrome [Unknown]
  - Dizziness [Unknown]
  - Malaise [Unknown]
  - Fatigue [Unknown]
  - Contusion [Unknown]
